FAERS Safety Report 10286523 (Version 1)
Quarter: 2014Q3

REPORT INFORMATION
  Report Type: Report from Study
  Country: BR (occurrence: BR)
  Receive Date: 20140709
  Receipt Date: 20140709
  Transmission Date: 20150326
  Serious: Yes (Other)
  Sender: FDA-Public Use
  Company Number: PHHY2014BR083342

PATIENT
  Sex: Female
  Weight: 75.3 kg

DRUGS (9)
  1. COMBIGAN [Suspect]
     Active Substance: BRIMONIDINE TARTRATE\TIMOLOL MALEATE
     Indication: EYE DISORDER
     Dosage: UNK UKN, UNK
  2. INSULIN NPH//INSULIN ISOPHANE PORCINE [Concomitant]
     Indication: DIABETES MELLITUS
     Dosage: 100 UKN, UNK
     Dates: start: 2005
  3. INDAPEN//INDAPAMIDE [Concomitant]
     Active Substance: INDAPAMIDE
     Indication: BLOOD PRESSURE ABNORMAL
     Dosage: 1.5 MG, UNK
  4. GALVUS MET [Suspect]
     Active Substance: METFORMIN HYDROCHLORIDE\VILDAGLIPTIN
     Indication: DIABETES MELLITUS
     Dosage: 1 DF (850/50MG), BID (IN THE MORNING AND AT NIGHT)
     Route: 048
  5. DIAMICRON [Concomitant]
     Active Substance: GLICLAZIDE
     Indication: DIABETES MELLITUS
     Dosage: 60 MG, UNK
  6. ARADOIS H [Concomitant]
     Active Substance: HYDROCHLOROTHIAZIDE\LOSARTAN POTASSIUM
     Indication: BLOOD PRESSURE ABNORMAL
     Dosage: 50 MG, UNK
  7. ZETIA [Concomitant]
     Active Substance: EZETIMIBE
     Indication: BLOOD CHOLESTEROL ABNORMAL
     Dosage: 10 MG, UNK
  8. SIMVASTATIN. [Suspect]
     Active Substance: SIMVASTATIN
     Dosage: UNK UKN, UNK
  9. INSULIN REGULAR BEEF [Concomitant]
     Indication: DIABETES MELLITUS
     Dosage: 20 UKN, UNK

REACTIONS (9)
  - Cataract [Not Recovered/Not Resolved]
  - Colour blindness acquired [Not Recovered/Not Resolved]
  - Glaucoma [Not Recovered/Not Resolved]
  - Eye penetration [Not Recovered/Not Resolved]
  - Vision blurred [Not Recovered/Not Resolved]
  - Memory impairment [Not Recovered/Not Resolved]
  - Nervous system disorder [Not Recovered/Not Resolved]
  - Visual impairment [Not Recovered/Not Resolved]
  - Muscle spasms [Not Recovered/Not Resolved]
